FAERS Safety Report 19017659 (Version 2)
Quarter: 2021Q2

REPORT INFORMATION
  Report Type: Report from Study
  Country: US (occurrence: US)
  Receive Date: 20210317
  Receipt Date: 20210408
  Transmission Date: 20210717
  Serious: Yes (Death, Other)
  Sender: FDA-Public Use
  Company Number: US-PFIZER INC-2021252749

PATIENT
  Age: 13 Year

DRUGS (7)
  1. PENTOSTATIN. [Suspect]
     Active Substance: PENTOSTATIN
     Indication: T-CELL TYPE ACUTE LEUKAEMIA
     Dosage: 0.001 MG/KG, DAILY, TREATMENT DAYS 1
  2. PENTOSTATIN. [Suspect]
     Active Substance: PENTOSTATIN
     Dosage: 0.5 MG/KG, DAILY,  TREATMENT DAYS 4
  3. PENTOSTATIN. [Suspect]
     Active Substance: PENTOSTATIN
     Dosage: 0.1 MG/KG, DAILY, TREATMENT DAYS 3
  4. PENTOSTATIN. [Suspect]
     Active Substance: PENTOSTATIN
     Dosage: 1.5 MG/KG, DAILY,  TREATMENT DAYS 6
  5. PENTOSTATIN. [Suspect]
     Active Substance: PENTOSTATIN
     Dosage: 0.25 MG/KG, DAILY, TREATMENT DAYS 1,4
  6. PENTOSTATIN. [Suspect]
     Active Substance: PENTOSTATIN
     Dosage: 1.75 MG/KG, DAILY, TREATMENT DAYS 5
  7. PENTOSTATIN. [Suspect]
     Active Substance: PENTOSTATIN
     Dosage: 0.01 MG/KG, DAILY, TREATMENT DAYS 2

REACTIONS (2)
  - Pulmonary oedema [Fatal]
  - Renal failure [Unknown]
